FAERS Safety Report 4301680-1 (Version None)
Quarter: 2004Q1

REPORT INFORMATION
  Report Type: 
  Country: None (occurrence: None)
  Receive Date: 20040218
  Receipt Date: 20031114
  Transmission Date: 20041129
  Serious: Yes (Other)
  Sender: FDA-Public Use
  Company Number: 2002-11-0325

PATIENT
  Age: 47 Year
  Sex: Female
  Weight: 54.8852 kg

DRUGS (11)
  1. PEG-INTRON [Suspect]
     Indication: HEPATITIS C
     Dosage: 80 MG QW SUBCUTANEOUS; 50 MCG QW SUBCUTANEOUS
     Route: 058
     Dates: start: 20011126, end: 20011201
  2. PEG-INTRON [Suspect]
     Indication: HEPATITIS C
     Dosage: 80 MG QW SUBCUTANEOUS; 50 MCG QW SUBCUTANEOUS
     Route: 058
     Dates: start: 20011201, end: 20020510
  3. REBETOL [Suspect]
     Indication: HEPATITIS C
     Dosage: 800 MG QD ORAL
     Route: 048
     Dates: start: 20011126, end: 20020510
  4. CELEXA [Concomitant]
  5. TRIAZOLAM [Concomitant]
  6. XANAX [Concomitant]
  7. TYLENOL (CAPLET) [Concomitant]
  8. FLEXERIL [Concomitant]
  9. WELLBUTRIN [Concomitant]
  10. AMBIEN [Concomitant]
  11. FLONASE [Concomitant]

REACTIONS (32)
  - ANOREXIA [None]
  - ANXIETY [None]
  - APHONIA [None]
  - ARTHRALGIA [None]
  - CHILLS [None]
  - CONFUSIONAL STATE [None]
  - DEPRESSION [None]
  - DRY MOUTH [None]
  - FATIGUE [None]
  - HEADACHE [None]
  - HYPERHIDROSIS [None]
  - HYPERSENSITIVITY [None]
  - INFLUENZA LIKE ILLNESS [None]
  - INJECTION SITE REACTION [None]
  - INSOMNIA [None]
  - IRRITABILITY [None]
  - MALAISE [None]
  - MUSCULOSKELETAL DISCOMFORT [None]
  - MYALGIA [None]
  - NAUSEA [None]
  - NERVOUS SYSTEM DISORDER [None]
  - NEUROPATHY [None]
  - NEUTROPENIA [None]
  - ORAL PAIN [None]
  - PAIN [None]
  - PHARYNGOLARYNGEAL PAIN [None]
  - PYREXIA [None]
  - STOMATITIS [None]
  - SUICIDAL IDEATION [None]
  - SYSTEMIC INFLAMMATORY RESPONSE SYNDROME [None]
  - WEIGHT DECREASED [None]
  - WHITE BLOOD CELL COUNT DECREASED [None]
